FAERS Safety Report 19952158 (Version 1)
Quarter: 2021Q4

REPORT INFORMATION
  Report Type: Spontaneous
  Country: US (occurrence: US)
  Receive Date: 20211014
  Receipt Date: 20211014
  Transmission Date: 20220303
  Serious: Yes (Other)
  Sender: FDA-Public Use
  Company Number: US-ELI_LILLY_AND_COMPANY-US202110003191

PATIENT
  Sex: Male

DRUGS (4)
  1. TRULICITY [Suspect]
     Active Substance: DULAGLUTIDE
     Indication: Type 2 diabetes mellitus
     Dosage: 1.5 MG, UNKNOWN
     Route: 065
     Dates: start: 2020
  2. NOVOLIN N [Concomitant]
     Active Substance: INSULIN HUMAN
     Indication: Product used for unknown indication
  3. NOVOLIN R [Concomitant]
     Active Substance: INSULIN HUMAN
     Indication: Product used for unknown indication
  4. VICTOZA [Concomitant]
     Active Substance: LIRAGLUTIDE
     Indication: Product used for unknown indication

REACTIONS (19)
  - Pancreatitis [Unknown]
  - Renal pain [Unknown]
  - Renal disorder [Unknown]
  - Blood glucose abnormal [Unknown]
  - Mobility decreased [Unknown]
  - Food poisoning [Unknown]
  - Liver disorder [Unknown]
  - Myalgia [Unknown]
  - Chest pain [Unknown]
  - Swelling [Unknown]
  - Pain [Unknown]
  - Large intestine infection [Unknown]
  - Frequent bowel movements [Unknown]
  - Constipation [Unknown]
  - Gastrooesophageal reflux disease [Unknown]
  - Eructation [Unknown]
  - Nausea [Unknown]
  - Gastrointestinal disorder [Unknown]
  - Abdominal pain [Unknown]
